FAERS Safety Report 4551585-6 (Version None)
Quarter: 2005Q1

REPORT INFORMATION
  Report Type: 
  Country: None (occurrence: None)
  Receive Date: 20050111
  Receipt Date: 20050105
  Transmission Date: 20050727
  Serious: Yes (Other)
  Sender: FDA-Public Use
  Company Number: K200500015

PATIENT
  Age: 52 Year
  Sex: Female
  Weight: 70.7 kg

DRUGS (1)
  1. LEVOXYL [Suspect]
     Indication: HYPOTHYROIDISM
     Dosage: 75 MCG, QD, ORAL
     Route: 048
     Dates: start: 20041201

REACTIONS (4)
  - FOREIGN BODY TRAUMA [None]
  - ORAL ADMINISTRATION COMPLICATION [None]
  - PHARMACEUTICAL PRODUCT COMPLAINT [None]
  - THROAT IRRITATION [None]
